FAERS Safety Report 18378142 (Version 2)
Quarter: 2020Q4

REPORT INFORMATION
  Report Type: Not Available
  Country: None (occurrence: None)
  Receive Date: 20201013
  Receipt Date: 20201023
  Transmission Date: 20210114
  Serious: No
  Sender: FDA-Public Use
  Company Number: US-AKORN INC.-153173

PATIENT
  Sex: Female

DRUGS (1)
  1. FLUTICASONE PROPIONATE. [Suspect]
     Active Substance: FLUTICASONE PROPIONATE

REACTIONS (3)
  - Rash [Recovered/Resolved]
  - Pruritus [None]
  - Erythema [Unknown]

NARRATIVE: CASE EVENT DATE: 20200909
